FAERS Safety Report 23570420 (Version 1)
Quarter: 2024Q1

REPORT INFORMATION
  Report Type: Spontaneous
  Country: US (occurrence: US)
  Receive Date: 20240227
  Receipt Date: 20240227
  Transmission Date: 20240409
  Serious: No
  Sender: FDA-Public Use
  Company Number: US-HALEON-USCH2024007904

PATIENT
  Age: 53 Year
  Sex: Female

DRUGS (1)
  1. ALLI [Suspect]
     Active Substance: ORLISTAT
     Indication: Weight decreased
     Dosage: UNK
     Dates: start: 20240202, end: 20240211

REACTIONS (6)
  - Discharge [Recovered/Resolved]
  - Abdominal pain upper [Recovered/Resolved]
  - Breath odour [Recovered/Resolved]
  - Skin odour abnormal [Recovered/Resolved]
  - Gastrointestinal pain [Recovered/Resolved]
  - Flatulence [Recovered/Resolved]

NARRATIVE: CASE EVENT DATE: 20240208
